FAERS Safety Report 5357169-4 (Version None)
Quarter: 2007Q2

REPORT INFORMATION
  Report Type: 
  Country: None (occurrence: None)
  Receive Date: 20070612
  Receipt Date: 20070606
  Transmission Date: 20071010
  Serious: Yes (Other)
  Sender: FDA-Public Use
  Company Number: 167-C5013-07060209

PATIENT
  Age: 57 Year
  Sex: Female

DRUGS (2)
  1. CC-5013         (LENALIDOMIDE) [Suspect]
     Indication: MULTIPLE MYELOMA
     Dosage: 25 MG, DAILY FOR 28 DAYS, ORAL
     Route: 048
     Dates: start: 20070522
  2. DEXAMETHASONE TAB [Suspect]
     Indication: MULTIPLE MYELOMA
     Dosage: 40 MG, DAILY ON DAYS 1-4, 9-12, 17-20 Q28D, ORAL
     Route: 048
     Dates: start: 20070522

REACTIONS (3)
  - ANXIETY [None]
  - DYSPNOEA [None]
  - MUSCULAR WEAKNESS [None]
